FAERS Safety Report 8817080 (Version 1)
Quarter: 2012Q4

REPORT INFORMATION
  Report Type: Spontaneous
  Country: US (occurrence: None)
  Receive Date: 20121003
  Receipt Date: 20121003
  Transmission Date: 20130627
  Serious: No
  Sender: FDA-Public Use
  Company Number: None

PATIENT
  Age: 59 Year
  Sex: Female
  Weight: 92.99 kg

DRUGS (27)
  1. PRECEDEX [Suspect]
     Indication: SEDATIVE THERAPY
     Dates: start: 20120829, end: 20120910
  2. ZOSYN [Concomitant]
  3. BUPROPION XL [Concomitant]
  4. CLONAZEPAM [Concomitant]
  5. DUULOXETINE [Concomitant]
  6. METOPROLOL TARTRATE [Concomitant]
  7. PRANIPEXOLE [Concomitant]
  8. CHLORHEXIDINE [Concomitant]
  9. HEPARIN [Concomitant]
  10. FENTANYL [Concomitant]
  11. LORAZEPAM [Concomitant]
  12. NORMAL SALINE [Concomitant]
  13. NOREPINEPHRINE [Concomitant]
  14. HYDROMORPHONE [Concomitant]
  15. TIGECYCLINE [Concomitant]
  16. VANCOMYCIN [Concomitant]
  17. PROPOFOL [Concomitant]
  18. PANTOPRAZOLE [Concomitant]
  19. FUROSEMIDE [Concomitant]
  20. VASOPRESSION [Concomitant]
  21. REGULAR INSULIN [Concomitant]
  22. DOBUTAMINE [Concomitant]
  23. MEROPENEM [Concomitant]
  24. DEXTROSE 5% [Concomitant]
  25. FLAGYL [Concomitant]
  26. TPN [Concomitant]
  27. CISATRACUARIUM [Concomitant]

REACTIONS (6)
  - Pyrexia [None]
  - White blood cell count increased [None]
  - Pneumonia aspiration [None]
  - Klebsiella test positive [None]
  - Escherichia test positive [None]
  - Clostridium test positive [None]
